FAERS Safety Report 21903234 (Version 1)
Quarter: 2023Q1

REPORT INFORMATION
  Report Type: Spontaneous
  Country: US (occurrence: US)
  Receive Date: 20230124
  Receipt Date: 20230124
  Transmission Date: 20230418
  Serious: Yes (Death, Other)
  Sender: FDA-Public Use
  Company Number: US-PFIZER INC-202300029333

PATIENT
  Age: 63 Year
  Sex: Male

DRUGS (4)
  1. VANCOMYCIN HYDROCHLORIDE [Suspect]
     Active Substance: VANCOMYCIN HYDROCHLORIDE
     Indication: Fusarium infection
     Dosage: UNK
  2. CEFEPIME HYDROCHLORIDE [Suspect]
     Active Substance: CEFEPIME HYDROCHLORIDE
     Indication: Fusarium infection
     Dosage: UNK
  3. AMPICILLIN [Suspect]
     Active Substance: AMPICILLIN
     Indication: Fusarium infection
     Dosage: UNK
  4. ACYCLOVIR SODIUM [Suspect]
     Active Substance: ACYCLOVIR SODIUM
     Indication: Fusarium infection
     Dosage: UNK

REACTIONS (3)
  - Hypoxia [Fatal]
  - Septic shock [Fatal]
  - Mental disorder [Fatal]
